FAERS Safety Report 10903196 (Version 1)
Quarter: 2015Q1

REPORT INFORMATION
  Report Type: Spontaneous
  Country: US (occurrence: US)
  Receive Date: 20150311
  Receipt Date: 20150311
  Transmission Date: 20150721
  Serious: Yes (Hospitalization)
  Sender: FDA-Public Use
  Company Number: US-AUROBINDO-AUR-APL-2015-01933

PATIENT
  Age: 91 Year
  Sex: Female

DRUGS (7)
  1. HALOPERIDOL. [Suspect]
     Active Substance: HALOPERIDOL
     Dosage: 4 MG, AS NECESSARY
     Route: 065
  2. TRAZODONE [Suspect]
     Active Substance: TRAZODONE HYDROCHLORIDE
     Indication: PRODUCT USED FOR UNKNOWN INDICATION
     Dosage: UNK
     Route: 065
  3. QUETIAPINE [Suspect]
     Active Substance: QUETIAPINE
     Dosage: 25 MG, AT BED TIME
     Route: 065
  4. TEMAZEPAM. [Suspect]
     Active Substance: TEMAZEPAM
     Indication: PRODUCT USED FOR UNKNOWN INDICATION
     Dosage: 15 MG, AT BED TIME
     Route: 065
  5. QUETIAPINE [Suspect]
     Active Substance: QUETIAPINE
     Indication: AGITATION
     Dosage: 25-50 MG,TWO TIMES A DAY
     Route: 065
  6. CLONAZEPAM. [Suspect]
     Active Substance: CLONAZEPAM
     Indication: PRODUCT USED FOR UNKNOWN INDICATION
     Dosage: 1 MG, DAILY
     Route: 065
  7. HALOPERIDOL. [Suspect]
     Active Substance: HALOPERIDOL
     Indication: DELIRIUM
     Dosage: 2.5 MG, AS NECESSARY
     Route: 030

REACTIONS (4)
  - Sedation [Recovering/Resolving]
  - Electrocardiogram QT prolonged [Recovering/Resolving]
  - Agitation [Recovering/Resolving]
  - Akathisia [Recovering/Resolving]
